FAERS Safety Report 17916341 (Version 4)
Quarter: 2020Q3

REPORT INFORMATION
  Report Type: Spontaneous
  Country: GB (occurrence: GB)
  Receive Date: 20200619
  Receipt Date: 20200708
  Transmission Date: 20201103
  Serious: Yes (Life-Threatening, Other)
  Sender: FDA-Public Use
  Company Number: GB-MYLANLABS-2020M1012905

PATIENT
  Age: 40 Year
  Sex: Female

DRUGS (2)
  1. CLOZARIL [Suspect]
     Active Substance: CLOZAPINE
     Dosage: UNK
     Route: 048
     Dates: start: 20200611
  2. CLOZARIL [Suspect]
     Active Substance: CLOZAPINE
     Indication: SCHIZOPHRENIA
     Dosage: UNK
     Route: 048
     Dates: start: 20200121

REACTIONS (8)
  - Psychotic disorder [Unknown]
  - Neutrophil count decreased [Recovered/Resolved]
  - Platelet count decreased [Recovered/Resolved]
  - Neutropenia [Unknown]
  - White blood cell count decreased [Recovered/Resolved]
  - Off label use [Unknown]
  - Malaise [Unknown]
  - Malnutrition [Unknown]

NARRATIVE: CASE EVENT DATE: 20200131
